FAERS Safety Report 7457355-3 (Version None)
Quarter: 2011Q2

REPORT INFORMATION
  Report Type: 
  Country: None (occurrence: None)
  Receive Date: 20110504
  Receipt Date: 20110420
  Transmission Date: 20111010
  Serious: Yes (Other)
  Sender: FDA-Public Use
  Company Number: CA-CELGENEUS-028-C5013-11012500

PATIENT
  Sex: Male
  Weight: 93.3 kg

DRUGS (12)
  1. FRAGMIN [Concomitant]
     Dosage: 18000 UNITS
     Route: 058
     Dates: start: 20100914
  2. ADALAT [Concomitant]
     Indication: HYPERTENSION
     Dosage: 250 MILLIGRAM
     Route: 048
     Dates: start: 19750101
  3. PAMIDRONATE DISODIUM [Concomitant]
     Dosage: 90 MILLIGRAM
     Route: 051
     Dates: start: 20100817
  4. VITAMIN B-12 [Concomitant]
     Route: 065
  5. DEXAMETHASONE [Suspect]
     Dosage: 20 MILLIGRAM
     Route: 065
     Dates: start: 20100118
  6. NORVASC [Concomitant]
     Indication: HYPERTENSION
     Dosage: 2.5 MILLIGRAM
     Route: 048
     Dates: start: 20090801
  7. LENALIDOMIDE [Suspect]
     Indication: MULTIPLE MYELOMA
     Dosage: 25 MILLIGRAM
     Route: 048
     Dates: start: 20091026
  8. DEXAMETHASONE [Suspect]
     Indication: MULTIPLE MYELOMA
     Dosage: 20 MILLIGRAM
     Route: 065
     Dates: start: 20091026
  9. LENALIDOMIDE [Suspect]
     Dosage: 25 MILLIGRAM
     Route: 048
     Dates: start: 20110118
  10. ALLOPURINOL [Concomitant]
     Indication: GOUT
     Dosage: 300 MILLIGRAM
     Route: 048
     Dates: start: 19650101
  11. METHYLDOPA [Concomitant]
     Route: 065
  12. AMLODIPINE [Concomitant]
     Route: 065

REACTIONS (1)
  - MALIGNANT MELANOMA [None]
